FAERS Safety Report 10972016 (Version 4)
Quarter: 2015Q3

REPORT INFORMATION
  Report Type: Spontaneous
  Country: US (occurrence: US)
  Receive Date: 20150331
  Receipt Date: 20150825
  Transmission Date: 20151125
  Serious: Yes (Other)
  Sender: FDA-Public Use
  Company Number: US-JNJFOC-20150317916

PATIENT
  Sex: Female

DRUGS (14)
  1. INVOKANA [Suspect]
     Active Substance: CANAGLIFLOZIN
     Indication: NEUROPATHY PERIPHERAL
     Dosage: HALF A TABLET OF 300 MG STRENGTH
     Route: 048
     Dates: start: 20150222, end: 20150304
  2. INVOKANA [Suspect]
     Active Substance: CANAGLIFLOZIN
     Indication: NEUROPATHY PERIPHERAL
     Route: 048
     Dates: start: 20150106, end: 20150207
  3. INVOKANA [Suspect]
     Active Substance: CANAGLIFLOZIN
     Indication: TYPE 2 DIABETES MELLITUS
     Dosage: HALF A TABLET OF 300 MG STRENGTH
     Route: 048
     Dates: start: 20150305, end: 20150326
  4. INVOKANA [Suspect]
     Active Substance: CANAGLIFLOZIN
     Indication: TYPE 2 DIABETES MELLITUS
     Dosage: HALF TABLET OF 100 MG STRENGTH
     Route: 048
     Dates: start: 20150208, end: 201502
  5. INVOKANA [Suspect]
     Active Substance: CANAGLIFLOZIN
     Indication: TYPE 2 DIABETES MELLITUS
     Dosage: HALF A TABLET OF 300 MG STRENGTH
     Route: 048
     Dates: start: 20150222, end: 20150304
  6. INVOKANA [Suspect]
     Active Substance: CANAGLIFLOZIN
     Indication: NEUROPATHY PERIPHERAL
     Route: 048
     Dates: start: 201502, end: 201502
  7. INVOKANA [Suspect]
     Active Substance: CANAGLIFLOZIN
     Indication: TYPE 2 DIABETES MELLITUS
     Route: 048
     Dates: start: 20150106, end: 20150207
  8. INVOKAMET [Suspect]
     Active Substance: CANAGLIFLOZIN\METFORMIN HYDROCHLORIDE
     Indication: NEUROPATHY PERIPHERAL
     Dosage: 50/1000 MG
     Route: 048
     Dates: start: 20150219, end: 20150221
  9. INVOKANA [Suspect]
     Active Substance: CANAGLIFLOZIN
     Indication: NEUROPATHY PERIPHERAL
     Dosage: HALF A TABLET OF 300 MG STRENGTH
     Route: 048
     Dates: start: 20150305, end: 20150326
  10. INVOKAMET [Suspect]
     Active Substance: CANAGLIFLOZIN\METFORMIN HYDROCHLORIDE
     Indication: TYPE 2 DIABETES MELLITUS
     Dosage: 50/1000 MG
     Route: 048
     Dates: start: 20150219, end: 20150221
  11. INVOKANA [Suspect]
     Active Substance: CANAGLIFLOZIN
     Indication: NEUROPATHY PERIPHERAL
     Dosage: HALF TABLET OF 100 MG STRENGTH
     Route: 048
     Dates: start: 20150208, end: 201502
  12. INVOKANA [Suspect]
     Active Substance: CANAGLIFLOZIN
     Indication: NEUROPATHY PERIPHERAL
     Route: 048
     Dates: start: 20150326
  13. INVOKANA [Suspect]
     Active Substance: CANAGLIFLOZIN
     Indication: TYPE 2 DIABETES MELLITUS
     Route: 048
     Dates: start: 201502, end: 201502
  14. INVOKANA [Suspect]
     Active Substance: CANAGLIFLOZIN
     Indication: TYPE 2 DIABETES MELLITUS
     Route: 048
     Dates: start: 20150326

REACTIONS (36)
  - Hearing impaired [Recovering/Resolving]
  - Dysphagia [Not Recovered/Not Resolved]
  - Migraine [Recovered/Resolved]
  - Urinary tract infection [Unknown]
  - Pruritus [Unknown]
  - Urticaria [Unknown]
  - Blindness [Recovered/Resolved]
  - Insomnia [Unknown]
  - Dehydration [Unknown]
  - Anaphylactic reaction [Unknown]
  - Eye pain [Recovered/Resolved]
  - Nasal congestion [Not Recovered/Not Resolved]
  - Blood glucose increased [Unknown]
  - Neuropathy peripheral [Not Recovered/Not Resolved]
  - Ear discomfort [Not Recovered/Not Resolved]
  - Seasonal allergy [Unknown]
  - Inappropriate schedule of drug administration [Recovered/Resolved]
  - Swelling face [Unknown]
  - Dyspnoea [Not Recovered/Not Resolved]
  - Pain [Unknown]
  - Dry mouth [Not Recovered/Not Resolved]
  - Rash [Unknown]
  - Pharyngeal oedema [Not Recovered/Not Resolved]
  - Dysgeusia [Not Recovered/Not Resolved]
  - Blood glucose fluctuation [Not Recovered/Not Resolved]
  - Weight increased [Unknown]
  - Pyrexia [Recovering/Resolving]
  - Eye discharge [Recovered/Resolved]
  - Oropharyngeal pain [Unknown]
  - Dizziness [Unknown]
  - Adverse event [Unknown]
  - Eye swelling [Recovered/Resolved]
  - Conjunctivitis [Unknown]
  - Wrong technique in product usage process [Recovered/Resolved]
  - Chest pain [Recovered/Resolved]
  - Nausea [Recovered/Resolved]

NARRATIVE: CASE EVENT DATE: 2015
